FAERS Safety Report 16571168 (Version 2)
Quarter: 2019Q3

REPORT INFORMATION
  Report Type: Spontaneous
  Country: FR (occurrence: FR)
  Receive Date: 20190715
  Receipt Date: 20190717
  Transmission Date: 20191004
  Serious: Yes (Hospitalization)
  Sender: FDA-Public Use
  Company Number: FR-SA-2019SA186684

PATIENT
  Age: 74 Year
  Sex: Female
  Weight: 90.8 kg

DRUGS (6)
  1. CEFTRIAXONE. [Suspect]
     Active Substance: CEFTRIAXONE
     Indication: APLASIA
     Dosage: 2 G, QD
     Route: 042
     Dates: start: 20190530, end: 20190605
  2. CYTARABINE. [Suspect]
     Active Substance: CYTARABINE
     Indication: ACUTE LEUKAEMIA
     Dosage: 385 MG, QCY
     Route: 042
     Dates: start: 20190601, end: 20190608
  3. ONDANSETRON HYDROCHLORIDE. [Suspect]
     Active Substance: ONDANSETRON HYDROCHLORIDE
     Indication: PROPHYLAXIS OF NAUSEA AND VOMITING
     Dosage: 16 MG, QD
     Route: 042
     Dates: start: 20190601, end: 20190608
  4. DEXAMETHASONE SODIUM PHOSPHATE. [Suspect]
     Active Substance: DEXAMETHASONE SODIUM PHOSPHATE
     Indication: INFLAMMATION
     Dosage: 20 MG, QD, 1-0-1
     Route: 042
     Dates: start: 20190530, end: 20190602
  5. ZAVEDOS [Suspect]
     Active Substance: IDARUBICIN
     Indication: ACUTE LEUKAEMIA
     Dosage: 23.15 MG, QCY
     Route: 042
     Dates: start: 20190604, end: 20190606
  6. RASBURICASE [Suspect]
     Active Substance: RASBURICASE
     Indication: HYPERURICAEMIA
     Dosage: 1 DF, TOTAL
     Route: 042
     Dates: start: 20190602, end: 20190602

REACTIONS (2)
  - Palmar-plantar erythrodysaesthesia syndrome [Recovering/Resolving]
  - Rash maculo-papular [Recovering/Resolving]

NARRATIVE: CASE EVENT DATE: 20190607
